FAERS Safety Report 4594652-3 (Version None)
Quarter: 2005Q1

REPORT INFORMATION
  Report Type: 
  Country: None (occurrence: None)
  Receive Date: 20050301
  Receipt Date: 20041122
  Transmission Date: 20050727
  Serious: No
  Sender: FDA-Public Use
  Company Number: US-BRISTOL-MYERS SQUIBB COMPANY-12774360

PATIENT
  Age: 51 Year
  Sex: Female

DRUGS (3)
  1. ERBITUX [Suspect]
     Indication: HEPATIC NEOPLASM MALIGNANT
     Dosage: 700 MG ON 06-MAY-2004/THEN 440 MG WEEKLY/DECREASED TO 350 MG 22-NOV-2004. ADMIN. OVER 1 HOUR.
     Route: 042
     Dates: start: 20041101, end: 20041101
  2. CARBOPLATIN [Concomitant]
     Dosage: WHEN LABS OKAY
  3. TAXOL [Concomitant]
     Dosage: WHEN LABS OKAY

REACTIONS (7)
  - EPISTAXIS [None]
  - ERYTHEMA OF EYELID [None]
  - GENITAL HAEMORRHAGE [None]
  - HAEMATURIA [None]
  - RASH [None]
  - SKIN EXFOLIATION [None]
  - SKIN HAEMORRHAGE [None]
